FAERS Safety Report 16161952 (Version 2)
Quarter: 2019Q2

REPORT INFORMATION
  Report Type: Spontaneous
  Country: GB (occurrence: GB)
  Receive Date: 20190405
  Receipt Date: 20190425
  Transmission Date: 20190711
  Serious: Yes (Hospitalization, Disabling)
  Sender: FDA-Public Use
  Company Number: GB-ACCORD-117880

PATIENT
  Age: 87 Year

DRUGS (13)
  1. AMLODIPINE [Concomitant]
     Active Substance: AMLODIPINE BESYLATE
  2. TIOTROPIUM/TIOTROPIUM BROMIDE [Concomitant]
  3. ADCAL-D3 [Concomitant]
     Active Substance: CALCIUM CARBONATE\CHOLECALCIFEROL
     Dosage: COLECALCIFEROL 400UNIT / CALCIUM CARBONATE 1.5G
  4. FLUDROCORTISONE [Concomitant]
     Active Substance: FLUDROCORTISONE
  5. TERBUTALINE [Concomitant]
     Active Substance: TERBUTALINE
  6. DUORESP SPIROMAX [Concomitant]
     Active Substance: BUDESONIDE\FORMOTEROL
     Dosage: 320 MCG/9 MCG/DOSE
  7. SERTRALINE [Suspect]
     Active Substance: SERTRALINE HYDROCHLORIDE
     Indication: PRODUCT USED FOR UNKNOWN INDICATION
     Dates: start: 20181114, end: 20181213
  8. SIMVASTATIN. [Concomitant]
     Active Substance: SIMVASTATIN
  9. RANITIDINE. [Concomitant]
     Active Substance: RANITIDINE
  10. BISOPROLOL [Concomitant]
     Active Substance: BISOPROLOL
  11. CODEINE [Concomitant]
     Active Substance: CODEINE
     Dosage: 30-60MG FOUR TIMES A DAY AS NECESSARY.
  12. APIXABAN [Concomitant]
     Active Substance: APIXABAN
  13. PROCHLORPERAZINE. [Concomitant]
     Active Substance: PROCHLORPERAZINE

REACTIONS (5)
  - Hyponatraemia [Unknown]
  - Confusional state [Unknown]
  - Pneumonia [Unknown]
  - Abnormal loss of weight [Unknown]
  - Decreased appetite [Unknown]
